FAERS Safety Report 8990699 (Version 1)
Quarter: 2012Q4

REPORT INFORMATION
  Report Type: Spontaneous
  Country: US (occurrence: None)
  Receive Date: 20121226
  Receipt Date: 20121226
  Transmission Date: 20130627
  Serious: Yes (Hospitalization)
  Sender: FDA-Public Use
  Company Number: None

PATIENT
  Age: 69 Year
  Sex: Male
  Weight: 93.2 kg

DRUGS (3)
  1. WARFARIN [Suspect]
     Dosage: MG PO
     Route: 048
     Dates: start: 20120614
  2. WARFARIN [Suspect]
     Dosage: MG PO
     Route: 048
     Dates: start: 20120614
  3. SPIRONOLACTONE [Suspect]
     Dosage: MG BID PO
     Route: 048

REACTIONS (9)
  - Cerebrovascular accident [None]
  - Meningioma [None]
  - Deep vein thrombosis [None]
  - Asthenia [None]
  - Hyperkalaemia [None]
  - International normalised ratio increased [None]
  - Myalgia [None]
  - Blood urea increased [None]
  - Blood creatinine increased [None]
